FAERS Safety Report 9061710 (Version 1)
Quarter: 2013Q1

REPORT INFORMATION
  Report Type: Spontaneous
  Country: US (occurrence: None)
  Receive Date: 20130122
  Receipt Date: 20130122
  Transmission Date: 20140127
  Serious: Yes (Other)
  Sender: FDA-Public Use
  Company Number: 001453435A

PATIENT
  Age: 54 Year
  Sex: Female

DRUGS (2)
  1. PROACTIV RENEWING CLEANSER [Suspect]
     Indication: ACNE
     Route: 023
     Dates: start: 20121031
  2. PROACTIV REPAIRING TREATMENT [Suspect]
     Indication: ACNE
     Route: 023
     Dates: start: 20121031, end: 20121031

REACTIONS (4)
  - Throat irritation [None]
  - Oedema mouth [None]
  - Tongue oedema [None]
  - Dyspnoea [None]
